FAERS Safety Report 10177513 (Version 1)
Quarter: 2014Q2

REPORT INFORMATION
  Report Type: Spontaneous
  Country: TR (occurrence: TR)
  Receive Date: 20140516
  Receipt Date: 20140516
  Transmission Date: 20141212
  Serious: Yes (Hospitalization)
  Sender: FDA-Public Use
  Company Number: TR-MYLANLABS-2014S1010628

PATIENT
  Age: 80 Year
  Sex: Male

DRUGS (8)
  1. PANTOPRAZOLE [Suspect]
     Indication: GASTROOESOPHAGEAL REFLUX DISEASE
     Route: 065
  2. PANTOPRAZOLE [Suspect]
     Indication: DYSPEPSIA
     Route: 065
  3. LEVODOPA [Concomitant]
     Indication: PARKINSON^S DISEASE
     Dosage: 125 MG
     Route: 065
  4. BENSERAZIDE [Concomitant]
     Indication: PARKINSON^S DISEASE
     Route: 065
  5. RASAGILINE [Concomitant]
     Indication: PARKINSON^S DISEASE
     Dosage: 1 MG DAILY
     Route: 065
  6. CLOPIDOGREL [Concomitant]
     Indication: CORONARY ARTERY DISEASE
     Dosage: 75 MG DAILY
     Route: 065
  7. TAMSULOSIN [Concomitant]
     Indication: BENIGN PROSTATIC HYPERPLASIA
     Dosage: 0.4 MG DAILY
     Route: 065
  8. TROSPIUM CHLORIDE [Concomitant]
     Indication: URINARY INCONTINENCE
     Dosage: 30 MG TWICE DAILY
     Route: 065

REACTIONS (4)
  - Hyponatraemia [Recovered/Resolved]
  - Nausea [Recovered/Resolved]
  - Vertigo [Recovered/Resolved]
  - Gynaecomastia [Recovered/Resolved]
